FAERS Safety Report 18215855 (Version 2)
Quarter: 2020Q3

REPORT INFORMATION
  Report Type: Spontaneous
  Country: PH (occurrence: PH)
  Receive Date: 20200831
  Receipt Date: 20200921
  Transmission Date: 20201103
  Serious: Yes (Hospitalization)
  Sender: FDA-Public Use
  Company Number: PH-ROCHE-2667822

PATIENT
  Age: 66 Year
  Sex: Male
  Weight: 70 kg

DRUGS (2)
  1. ACTEMRA [Suspect]
     Active Substance: TOCILIZUMAB
     Indication: COVID-19
     Dosage: ONE DOSE
     Route: 041
     Dates: start: 20200713, end: 20200713
  2. ACTEMRA [Suspect]
     Active Substance: TOCILIZUMAB
     Indication: PNEUMONIA
     Dosage: ONE DOSE
     Route: 041
     Dates: start: 20200714, end: 20200714

REACTIONS (3)
  - Inflammatory marker increased [Recovering/Resolving]
  - Off label use [Unknown]
  - Intentional product use issue [Unknown]
